FAERS Safety Report 25102910 (Version 1)
Quarter: 2025Q1

REPORT INFORMATION
  Report Type: Spontaneous
  Country: CA (occurrence: CA)
  Receive Date: 20250321
  Receipt Date: 20250321
  Transmission Date: 20250409
  Serious: Yes (Other)
  Sender: ADVANZ PHARMA
  Company Number: CA-SANOFI-AVENTIS R+D-2025SA072070

PATIENT

DRUGS (9)
  1. HYDROXYCHLOROQUINE [Suspect]
     Active Substance: HYDROXYCHLOROQUINE
     Indication: Product used for unknown indication
     Route: 065
     Dates: start: 2014, end: 2017
  2. METHOTREXATE [Suspect]
     Active Substance: METHOTREXATE
     Indication: Rheumatoid arthritis
     Route: 065
     Dates: start: 2010, end: 202411
  3. ARAVA [Suspect]
     Active Substance: LEFLUNOMIDE
     Route: 065
     Dates: start: 2012, end: 2014
  4. PREDNISONE [Concomitant]
     Active Substance: PREDNISONE
     Dates: start: 2021
  5. SULFASALAZINE [Concomitant]
     Active Substance: SULFASALAZINE
     Dates: start: 2012, end: 2014
  6. XELJANZ [Concomitant]
     Active Substance: TOFACITINIB CITRATE
     Dates: start: 2018, end: 202211
  7. RINVOQ [Concomitant]
     Active Substance: UPADACITINIB
     Dates: start: 202211, end: 202303
  8. SIMPONI [Concomitant]
     Active Substance: GOLIMUMAB
     Dates: start: 202306, end: 202406
  9. ACTEMRA [Concomitant]
     Active Substance: TOCILIZUMAB
     Dates: start: 202407, end: 20250127

REACTIONS (4)
  - Knee arthroplasty [Unknown]
  - Liver disorder [Unknown]
  - Heavy menstrual bleeding [Unknown]
  - Drug ineffective [Unknown]

NARRATIVE: CASE EVENT DATE: 20230101
